FAERS Safety Report 7836522-0 (Version None)
Quarter: 2011Q4

REPORT INFORMATION
  Report Type: 
  Country: None (occurrence: None)
  Receive Date: 20111024
  Receipt Date: 20110912
  Transmission Date: 20120403
  Serious: No
  Sender: FDA-Public Use
  Company Number: US-ABBOTT-11P-163-0850803-00

PATIENT
  Sex: Female
  Weight: 111.23 kg

DRUGS (2)
  1. LUPRON DEPOT [Suspect]
     Indication: ENDOMETRIOSIS
     Route: 030
     Dates: start: 20110201, end: 20110801
  2. LUPRON DEPOT [Suspect]
     Indication: ENDOMETRIOSIS
     Route: 030
     Dates: start: 20110801

REACTIONS (6)
  - MENSTRUAL DISORDER [None]
  - HOT FLUSH [None]
  - OEDEMA PERIPHERAL [None]
  - HEADACHE [None]
  - WEIGHT INCREASED [None]
  - INSOMNIA [None]
